FAERS Safety Report 6711301-6 (Version None)
Quarter: 2010Q2

REPORT INFORMATION
  Report Type: 
  Country: None (occurrence: None)
  Receive Date: 20100505
  Receipt Date: 20100426
  Transmission Date: 20101027
  Serious: Yes (Other)
  Sender: FDA-Public Use
  Company Number: US-BRISTOL-MYERS SQUIBB COMPANY-15089824

PATIENT

DRUGS (1)
  1. TRIAMCINOLONE [Suspect]
     Indication: UVEITIS

REACTIONS (1)
  - CYTOMEGALOVIRUS INFECTION [None]
